FAERS Safety Report 23878815 (Version 1)
Quarter: 2024Q2

REPORT INFORMATION
  Report Type: Spontaneous
  Country: GB (occurrence: GB)
  Receive Date: 20240521
  Receipt Date: 20240521
  Transmission Date: 20240715
  Serious: Yes (Other)
  Sender: FDA-Public Use
  Company Number: None

PATIENT
  Age: 31 Year
  Sex: Male
  Weight: 122 kg

DRUGS (6)
  1. NAPROXEN [Suspect]
     Active Substance: NAPROXEN
     Route: 065
     Dates: start: 20240418
  2. CETRABEN [Concomitant]
     Dosage: TIME INTERVAL: AS NECESSARY: (EMOLLIENT TO SOFTEN SKIN), EMOLLIENT CREAM,
     Dates: start: 20231106, end: 20240423
  3. FEXOFENADINE [Concomitant]
     Active Substance: FEXOFENADINE HYDROCHLORIDE
     Dosage: TAKE ONE OR TWO DAILY, DURATION: 169 DAYS
     Dates: start: 20231106, end: 20240423
  4. MONTELUKAST [Concomitant]
     Active Substance: MONTELUKAST SODIUM
     Dates: start: 20231106, end: 20240423
  5. DERMOL [Concomitant]
     Active Substance: BENZALKONIUM CHLORIDE\CHLORHEXIDINE HYDROCHLORIDE\ISOPROPYL MYRISTATE\PARAFFIN
     Dosage: TIME INTERVAL: AS NECESSARY: (EMOLLIENT TO SOFTEN SKIN OR ,
     Dates: start: 20231106, end: 20240423
  6. SERTRALINE [Concomitant]
     Active Substance: SERTRALINE HYDROCHLORIDE
     Indication: Anxiety
     Dosage: (ANTI-ANXIETY + ANTIDEPRESSANT),
     Dates: start: 20231106, end: 20240423

REACTIONS (2)
  - Wheezing [Recovered/Resolved]
  - Rash [Recovered/Resolved]
